FAERS Safety Report 18123141 (Version 1)
Quarter: 2020Q3

REPORT INFORMATION
  Report Type: Spontaneous
  Country: FR (occurrence: FR)
  Receive Date: 20200807
  Receipt Date: 20200807
  Transmission Date: 20201103
  Serious: Yes (Hospitalization)
  Sender: FDA-Public Use
  Company Number: FR-CADILA HEALTHCARE LIMITED-FR-ZYDUS-024474

PATIENT

DRUGS (8)
  1. ESCITALOPRAM [Suspect]
     Active Substance: ESCITALOPRAM OXALATE
     Indication: TOXICITY TO VARIOUS AGENTS
     Dosage: 140 MILLIGRAM
     Route: 048
     Dates: start: 20180526, end: 20180527
  2. PARACETAMOL [Suspect]
     Active Substance: ACETAMINOPHEN
     Indication: TOXICITY TO VARIOUS AGENTS
     Dosage: 8.8 GRAM
     Dates: start: 20180526, end: 20180527
  3. BREXIN [Concomitant]
     Indication: TOXICITY TO VARIOUS AGENTS
     Dosage: 20 MILLIGRAM
     Route: 048
     Dates: start: 20180526, end: 20180527
  4. CEFUROXIME. [Concomitant]
     Active Substance: CEFUROXIME
     Indication: TOXICITY TO VARIOUS AGENTS
     Route: 048
     Dates: start: 20180526, end: 20180527
  5. ALPRAZOLAM. [Concomitant]
     Active Substance: ALPRAZOLAM
     Indication: TOXICITY TO VARIOUS AGENTS
     Dosage: 5 MILLIGRAM
     Route: 048
     Dates: start: 20180526, end: 20180527
  6. COLTRAMYL [Suspect]
     Active Substance: THIOCOLCHICOSIDE
     Indication: TOXICITY TO VARIOUS AGENTS
     Dosage: 48 MILLIGRAM
     Route: 048
     Dates: start: 20180526, end: 20180527
  7. IBUPROFEN. [Suspect]
     Active Substance: IBUPROFEN
     Indication: TOXICITY TO VARIOUS AGENTS
     Dosage: 6 GRAM
     Route: 048
     Dates: start: 20180526, end: 20180527
  8. ATARAX [Suspect]
     Active Substance: HYDROXYZINE HYDROCHLORIDE
     Indication: TOXICITY TO VARIOUS AGENTS
     Dosage: 750 MILLIGRAM
     Route: 048
     Dates: start: 20180526, end: 20180527

REACTIONS (3)
  - Pancreatitis [Recovered/Resolved]
  - Hyperleukocytosis [Recovered/Resolved]
  - Renal failure [Recovered/Resolved]

NARRATIVE: CASE EVENT DATE: 20180528
